FAERS Safety Report 6908878-4 (Version None)
Quarter: 2010Q3

REPORT INFORMATION
  Report Type: 
  Country: None (occurrence: None)
  Receive Date: 20100805
  Receipt Date: 20100728
  Transmission Date: 20110219
  Serious: Yes (Hospitalization)
  Sender: FDA-Public Use
  Company Number: US-AMGEN-KDL425595

PATIENT
  Sex: Male
  Weight: 64 kg

DRUGS (4)
  1. ENBREL [Suspect]
     Indication: RHEUMATOID ARTHRITIS
     Route: 058
     Dates: start: 20070509
  2. METHOTREXATE [Concomitant]
  3. FOLIC ACID [Concomitant]
  4. NAPROXEN [Concomitant]

REACTIONS (1)
  - THROMBOPHLEBITIS [None]
